FAERS Safety Report 6772622-4 (Version None)
Quarter: 2010Q2

REPORT INFORMATION
  Report Type: 
  Country: None (occurrence: None)
  Receive Date: 20100616
  Receipt Date: 20091006
  Transmission Date: 20101027
  Serious: No
  Sender: FDA-Public Use
  Company Number: US-ASTRAZENECA-2009SE18246

PATIENT
  Age: 86 Year
  Sex: Female

DRUGS (1)
  1. PULMICORT RESPULES [Suspect]
     Dosage: TOTAL DAILY DOSAGE 0.5 MG/ML
     Route: 055
     Dates: start: 20070101

REACTIONS (4)
  - ABDOMINAL DISTENSION [None]
  - DYSPHONIA [None]
  - DYSPNOEA [None]
  - HUNGER [None]
